FAERS Safety Report 11204900 (Version 1)
Quarter: 2015Q2

REPORT INFORMATION
  Report Type: Spontaneous
  Country: US (occurrence: None)
  Receive Date: 20150617
  Receipt Date: 20150617
  Transmission Date: 20150821
  Serious: Yes (Other)
  Sender: FDA-Public Use
  Company Number: ADR-2015-01146

PATIENT
  Age: 59 Year
  Sex: Female

DRUGS (3)
  1. BACLOFEN (UNKNOWN ROUTE) [Suspect]
     Active Substance: BACLOFEN
     Dates: start: 20140704
  2. EXFORGE [Suspect]
     Active Substance: AMLODIPINE BESYLATE\VALSARTAN
  3. ATENOLOL. [Suspect]
     Active Substance: ATENOLOL

REACTIONS (12)
  - Hypnopompic hallucination [None]
  - Abdominal pain upper [None]
  - Cognitive disorder [None]
  - Therapy cessation [None]
  - Decreased appetite [None]
  - Sedation [None]
  - Discomfort [None]
  - Hallucination, visual [None]
  - Oesophageal pain [None]
  - Weight decreased [None]
  - Muscle tightness [None]
  - Tinnitus [None]
